FAERS Safety Report 8079325-7 (Version None)
Quarter: 2012Q1

REPORT INFORMATION
  Report Type: 
  Country: None (occurrence: None)
  Receive Date: 20120128
  Receipt Date: 20110820
  Transmission Date: 20120608
  Serious: No
  Sender: FDA-Public Use
  Company Number: US-ABBOTT-11P-163-0848360-00

PATIENT
  Age: 14 Year
  Sex: Female

DRUGS (3)
  1. HUMIRA [Suspect]
     Indication: CROHN'S DISEASE
     Dates: start: 20110323
  2. SEPTRA [Concomitant]
     Indication: PROPHYLAXIS
     Dosage: DAILY
     Route: 048
  3. HUMIRA [Suspect]

REACTIONS (2)
  - ABDOMINAL PAIN [None]
  - FISTULA DISCHARGE [None]
